FAERS Safety Report 25919865 (Version 1)
Quarter: 2025Q4

REPORT INFORMATION
  Report Type: Spontaneous
  Country: US (occurrence: None)
  Receive Date: 20251010
  Receipt Date: 20251010
  Transmission Date: 20260118
  Serious: Yes (Hospitalization)
  Sender: FDA-CTU
  Company Number: None

PATIENT
  Sex: Male

DRUGS (1)
  1. COSENTYX [Suspect]
     Active Substance: SECUKINUMAB
     Indication: Psoriasis
     Dosage: OTHER FREQUENCY : EVERY 4 WEEKS;?
     Route: 058
     Dates: start: 20250303

REACTIONS (8)
  - Diarrhoea [None]
  - Constipation [None]
  - White blood cell count increased [None]
  - Infection [None]
  - Abdominal mass [None]
  - Dyspnoea [None]
  - Cough [None]
  - Muscle strain [None]
